FAERS Safety Report 4984618-3 (Version None)
Quarter: 2006Q2

REPORT INFORMATION
  Report Type: 
  Country: None (occurrence: None)
  Receive Date: 20060427
  Receipt Date: 20050413
  Transmission Date: 20061013
  Serious: Yes (Hospitalization, Disabling)
  Sender: FDA-Public Use
  Company Number: US-MERCK-0504USA02165

PATIENT
  Age: 33 Year
  Sex: Female
  Weight: 70 kg

DRUGS (3)
  1. VIOXX [Suspect]
     Indication: JOINT INJURY
     Route: 048
     Dates: start: 20040501, end: 20040701
  2. PAXIL [Concomitant]
     Route: 065
  3. MIDRIN [Concomitant]
     Route: 065

REACTIONS (10)
  - ARTHROPATHY [None]
  - CEREBRAL INFARCTION [None]
  - CHEST PAIN [None]
  - DIZZINESS [None]
  - DRUG INEFFECTIVE [None]
  - FATIGUE [None]
  - INJURY [None]
  - LIGAMENT INJURY [None]
  - MIGRAINE [None]
  - TRANSIENT ISCHAEMIC ATTACK [None]
